FAERS Safety Report 18794393 (Version 1)
Quarter: 2021Q1

REPORT INFORMATION
  Report Type: Spontaneous
  Country: NL (occurrence: NL)
  Receive Date: 20210127
  Receipt Date: 20210127
  Transmission Date: 20210419
  Serious: Yes (Other)
  Sender: FDA-Public Use
  Company Number: NL-TEVA-2021-NL-1872494

PATIENT
  Sex: Male
  Weight: 58 kg

DRUGS (1)
  1. BACLOFEN / BRAND NAME NOT SPECIFIED [Suspect]
     Active Substance: BACLOFEN
     Indication: HICCUPS
     Dosage: UNKNOWN TO REPORTER,
     Route: 065
     Dates: start: 202008, end: 20200826

REACTIONS (1)
  - Apnoea [Recovered/Resolved]
